FAERS Safety Report 5381500-7 (Version None)
Quarter: 2007Q3

REPORT INFORMATION
  Report Type: 
  Country: None (occurrence: None)
  Receive Date: 20070709
  Receipt Date: 20070628
  Transmission Date: 20080115
  Serious: Yes (Disabling)
  Sender: FDA-Public Use
  Company Number: PHBS2007AT10886

PATIENT
  Age: 63 Year
  Sex: Male

DRUGS (1)
  1. ZOMETA [Suspect]
     Indication: METASTASIS
     Route: 042
     Dates: start: 20040101, end: 20070101

REACTIONS (2)
  - OSTEONECROSIS [None]
  - PARAESTHESIA [None]
